FAERS Safety Report 14993490 (Version 3)
Quarter: 2018Q2

REPORT INFORMATION
  Report Type: Spontaneous
  Country: FR (occurrence: FR)
  Receive Date: 20180610
  Receipt Date: 20180625
  Transmission Date: 20180711
  Serious: Yes (Other)
  Sender: FDA-Public Use
  Company Number: FR-AUROBINDO-AUR-APL-2018-030378

PATIENT
  Age: 36 Year
  Sex: Female

DRUGS (8)
  1. PEMBROLIZUMAB. [Suspect]
     Active Substance: PEMBROLIZUMAB
     Indication: METASTATIC NEOPLASM
  2. FUNGIZONE [Suspect]
     Active Substance: AMPHOTERICIN B
     Indication: ORAL CANDIDIASIS
     Dosage: UNK
     Route: 065
  3. FUNGIZONE [Suspect]
     Active Substance: AMPHOTERICIN B
     Dosage: ADDITIONAL INFO: ROUTE: {SYSTEMIC} ()
     Route: 050
  4. PEMBROLIZUMAB. [Suspect]
     Active Substance: PEMBROLIZUMAB
     Indication: ACINIC CELL CARCINOMA OF SALIVARY GLAND
     Dosage: UNK 13TH INJECTION
     Route: 065
     Dates: start: 201612
  5. AMOXICILLIN. [Suspect]
     Active Substance: AMOXICILLIN
     Indication: RETINAL DETACHMENT
     Dosage: UNK
     Route: 065
  6. AMOXICILLIN. [Suspect]
     Active Substance: AMOXICILLIN
     Indication: ANTIBIOTIC THERAPY
     Dosage: ()
     Route: 065
  7. PEMBROLIZUMAB. [Suspect]
     Active Substance: PEMBROLIZUMAB
     Indication: METASTASES TO ADRENALS
     Dosage: 200 MILLIGRAM EVERY 3 WEEKS
     Route: 065
     Dates: start: 201603
  8. PEMBROLIZUMAB. [Suspect]
     Active Substance: PEMBROLIZUMAB
     Indication: METASTASES TO LUNG

REACTIONS (8)
  - Myopia [Recovering/Resolving]
  - Sjogren^s syndrome [Recovering/Resolving]
  - Conjunctival hyperaemia [Recovering/Resolving]
  - Rash [Recovering/Resolving]
  - Dry eye [Recovering/Resolving]
  - Oral candidiasis [Unknown]
  - Dry mouth [Recovering/Resolving]
  - Retinal detachment [Unknown]

NARRATIVE: CASE EVENT DATE: 201612
